FAERS Safety Report 8926113 (Version 1)
Quarter: 2012Q4

REPORT INFORMATION
  Report Type: 
  Country: US (occurrence: US)
  Receive Date: 20121127
  Receipt Date: 20121127
  Transmission Date: 20130627
  Serious: Yes (Hospitalization)
  Sender: FDA-Public Use
  Company Number: US-ABBOTT-12P-163-1009669-00

PATIENT
  Sex: Female

DRUGS (5)
  1. HUMIRA [Suspect]
     Indication: CROHN^S DISEASE
     Dosage: Crohn^s Starter Pack
     Dates: start: 201112, end: 201112
  2. HUMIRA [Suspect]
     Dates: start: 201201, end: 201201
  3. HUMIRA [Suspect]
     Dates: start: 201201, end: 20121015
  4. AZATHIOPRINE (NON-ABBOTT) [Concomitant]
     Indication: PRODUCT USED FOR UNKNOWN INDICATION
  5. ENTOCORT [Concomitant]
     Indication: PRODUCT USED FOR UNKNOWN INDICATION

REACTIONS (1)
  - Intestinal stenosis [Unknown]
